FAERS Safety Report 17047653 (Version 2)
Quarter: 2019Q4

REPORT INFORMATION
  Report Type: Spontaneous
  Country: NL (occurrence: NL)
  Receive Date: 20191119
  Receipt Date: 20191225
  Transmission Date: 20200122
  Serious: Yes (Other)
  Sender: FDA-Public Use
  Company Number: NVSC2019NL038656

PATIENT
  Sex: Male

DRUGS (1)
  1. SIMBRINZA [Suspect]
     Active Substance: BRIMONIDINE TARTRATE\BRINZOLAMIDE
     Indication: PRODUCT USED FOR UNKNOWN INDICATION
     Route: 065

REACTIONS (7)
  - Breath odour [Unknown]
  - Lung disorder [Unknown]
  - Pulmonary vascular disorder [Unknown]
  - Product packaging quantity issue [Unknown]
  - Pulmonary haemorrhage [Unknown]
  - Cough [Unknown]
  - Product physical consistency issue [Unknown]
